FAERS Safety Report 8979632 (Version 1)
Quarter: 2012Q4

REPORT INFORMATION
  Report Type: Report from Study
  Country: US (occurrence: US)
  Receive Date: 20121221
  Receipt Date: 20121221
  Transmission Date: 20130627
  Serious: Yes (Other)
  Sender: FDA-Public Use
  Company Number: US-US-EMD SERONO, INC.-7180673

PATIENT
  Age: 12 Year
  Sex: Male
  Weight: 30 kg

DRUGS (2)
  1. SAIZEN [(SOMATROPIN (RDNA ORIGIN) FOR INJECTION)] [Suspect]
     Indication: GROWTH RETARDATION
     Dates: start: 20090205
  2. CONCERTA [Concomitant]
     Indication: ATTENTION DEFICIT/HYPERACTIVITY DISORDER

REACTIONS (6)
  - Surgery [Recovering/Resolving]
  - Exophthalmos [Recovering/Resolving]
  - Myopia [Unknown]
  - Nocturia [Unknown]
  - Eczema [Recovering/Resolving]
  - Insulin-like growth factor increased [Recovered/Resolved]
